FAERS Safety Report 9775109 (Version 1)
Quarter: 2013Q4

REPORT INFORMATION
  Report Type: Spontaneous
  Country: US (occurrence: US)
  Receive Date: 20131220
  Receipt Date: 20131220
  Transmission Date: 20140711
  Serious: No
  Sender: FDA-Public Use
  Company Number: US-009507513-1312USA008083

PATIENT
  Sex: 0

DRUGS (1)
  1. AZASITE [Suspect]
     Dosage: 2 GTT, QOD
     Route: 047
     Dates: start: 201110

REACTIONS (3)
  - Incorrect drug administration duration [Unknown]
  - Inappropriate schedule of drug administration [Unknown]
  - No adverse event [Unknown]
